FAERS Safety Report 24798559 (Version 3)
Quarter: 2025Q1

REPORT INFORMATION
  Report Type: Spontaneous
  Country: DE (occurrence: DE)
  Receive Date: 20250102
  Receipt Date: 20250130
  Transmission Date: 20250409
  Serious: Yes (Hospitalization, Disabling, Other)
  Sender: ALKEM
  Company Number: None

PATIENT
  Age: 15 Year
  Sex: Male

DRUGS (1)
  1. FINGOLIMOD [Suspect]
     Active Substance: FINGOLIMOD
     Indication: Multiple sclerosis
     Route: 065

REACTIONS (4)
  - Rebound effect [Recovered/Resolved]
  - Treatment failure [Unknown]
  - Multiple sclerosis [Unknown]
  - Multiple sclerosis relapse [Recovering/Resolving]
